FAERS Safety Report 19477708 (Version 1)
Quarter: 2021Q2

REPORT INFORMATION
  Report Type: Report from Study
  Country: US (occurrence: US)
  Receive Date: 20210630
  Receipt Date: 20210630
  Transmission Date: 20210717
  Serious: Yes (Other)
  Sender: FDA-Public Use
  Company Number: US-TAKEDA-2021TUS017704

PATIENT
  Sex: Female

DRUGS (8)
  1. TEDUGLUTIDE [Suspect]
     Active Substance: TEDUGLUTIDE
     Indication: MALABSORPTION
     Dosage: 1.5 MILLIGRAM, QD
     Route: 058
     Dates: start: 20210222
  2. TEDUGLUTIDE [Suspect]
     Active Substance: TEDUGLUTIDE
     Indication: MALABSORPTION
     Dosage: 1.5 MILLIGRAM, QD
     Route: 058
     Dates: start: 20210223
  3. TEDUGLUTIDE [Suspect]
     Active Substance: TEDUGLUTIDE
     Indication: MALABSORPTION
     Dosage: 1.5 MILLIGRAM, QD
     Route: 058
     Dates: start: 20210223
  4. TEDUGLUTIDE [Suspect]
     Active Substance: TEDUGLUTIDE
     Indication: MALABSORPTION
     Dosage: 1.5 MILLIGRAM, QD
     Route: 058
     Dates: start: 20210223
  5. TEDUGLUTIDE [Suspect]
     Active Substance: TEDUGLUTIDE
     Indication: MALABSORPTION
     Dosage: 1.5 MILLIGRAM, QD
     Route: 058
     Dates: start: 20210222
  6. TEDUGLUTIDE [Suspect]
     Active Substance: TEDUGLUTIDE
     Indication: MALABSORPTION
     Dosage: 1.5 MILLIGRAM, QD
     Route: 058
     Dates: start: 20210223
  7. TEDUGLUTIDE [Suspect]
     Active Substance: TEDUGLUTIDE
     Indication: MALABSORPTION
     Dosage: 1.5 MILLIGRAM, QD
     Route: 058
     Dates: start: 20210222
  8. TEDUGLUTIDE [Suspect]
     Active Substance: TEDUGLUTIDE
     Indication: MALABSORPTION
     Dosage: 1.5 MILLIGRAM, QD
     Route: 058
     Dates: start: 20210222

REACTIONS (2)
  - Infected fistula [Unknown]
  - Stoma site oedema [Unknown]
